FAERS Safety Report 9138607 (Version 1)
Quarter: 2013Q1

REPORT INFORMATION
  Report Type: Spontaneous
  Country: US (occurrence: US)
  Receive Date: 20130305
  Receipt Date: 20130305
  Transmission Date: 20140127
  Serious: Yes (Other)
  Sender: FDA-Public Use
  Company Number: US-AMGEN-USASP2013012735

PATIENT
  Age: 80 Year
  Sex: Female

DRUGS (3)
  1. PROLIA [Suspect]
     Indication: OSTEOPOROSIS POSTMENOPAUSAL
     Dosage: UNK
     Dates: start: 20130111
  2. VITAMIN D /00107901/ [Concomitant]
  3. CALCIUM [Concomitant]

REACTIONS (6)
  - Bedridden [Unknown]
  - Arthropathy [Unknown]
  - Muscle spasms [Unknown]
  - Drooling [Unknown]
  - Back pain [Unknown]
  - Asthenia [Unknown]
